FAERS Safety Report 14046188 (Version 1)
Quarter: 2017Q4

REPORT INFORMATION
  Report Type: Spontaneous
  Country: CA (occurrence: CA)
  Receive Date: 20171005
  Receipt Date: 20171005
  Transmission Date: 20180321
  Serious: Yes (Hospitalization, Other)
  Sender: FDA-Public Use
  Company Number: CA-ASTRAZENECA-2017SE98595

PATIENT
  Age: 65 Year
  Sex: Male

DRUGS (7)
  1. FORMOTEROL FUMARATE DIHYDRATE [Concomitant]
     Active Substance: FORMOTEROL FUMARATE DIHYDRATE
  2. BUDESONIDE. [Interacting]
     Active Substance: BUDESONIDE
     Dosage: TOTAL DAILY DOSE 800 UG
     Route: 055
  3. BUDESONIDE. [Suspect]
     Active Substance: BUDESONIDE
     Dosage: TOTAL DAILY DOSE 128 UG
     Route: 045
  4. ABACAVIR. [Concomitant]
     Active Substance: ABACAVIR
     Indication: HIV INFECTION
  5. LAMIVUDINE. [Concomitant]
     Active Substance: LAMIVUDINE
     Indication: HIV INFECTION
  6. RITONAVIR. [Interacting]
     Active Substance: RITONAVIR
     Indication: HIV INFECTION
  7. BUDESONIDE. [Interacting]
     Active Substance: BUDESONIDE
     Dosage: REDUCED  DAILY DOSE 200 UG
     Route: 055

REACTIONS (2)
  - Inhibitory drug interaction [Recovered/Resolved]
  - Adrenocortical insufficiency acute [Recovered/Resolved]
